FAERS Safety Report 7268919-4 (Version None)
Quarter: 2011Q1

REPORT INFORMATION
  Report Type: 
  Country: None (occurrence: None)
  Receive Date: 20110201
  Receipt Date: 20110125
  Transmission Date: 20110831
  Serious: Yes (Death)
  Sender: FDA-Public Use
  Company Number: US-MILLENNIUM PHARMACEUTICALS, INC.-2011-00333

PATIENT
  Age: 79 Year
  Sex: Male
  Weight: 59.6 kg

DRUGS (1)
  1. VELCADE [Suspect]
     Indication: MULTIPLE MYELOMA
     Dosage: 2.4 MG, CYCLIC
     Route: 040
     Dates: start: 20101214, end: 20101221

REACTIONS (1)
  - MYOCARDIAL INFARCTION [None]
